FAERS Safety Report 8334303-5 (Version None)
Quarter: 2012Q2

REPORT INFORMATION
  Report Type: 
  Country: None (occurrence: None)
  Receive Date: 20120503
  Receipt Date: 20120426
  Transmission Date: 20120825
  Serious: Yes (Hospitalization, Other)
  Sender: FDA-Public Use
  Company Number: ES-ABBOTT-12P-144-0929645-00

PATIENT
  Age: 91 Year
  Sex: Female

DRUGS (6)
  1. SINTROM [Interacting]
     Indication: PROPHYLAXIS
     Route: 048
     Dates: start: 20081001, end: 20110712
  2. CYMBALTA [Interacting]
     Indication: DEPRESSION
     Route: 048
     Dates: start: 20110301, end: 20110712
  3. LETROZOLE [Concomitant]
     Indication: PRODUCT USED FOR UNKNOWN INDICATION
     Route: 048
     Dates: start: 20110501, end: 20110712
  4. OMEPRAZOLE [Concomitant]
     Indication: GASTRITIS PROPHYLAXIS
     Route: 048
     Dates: start: 20080301
  5. LOSARTAN POTASSIUM [Concomitant]
     Indication: HYPERTENSION
     Route: 048
     Dates: start: 20100801, end: 20110712
  6. FENOFIBRATE [Suspect]
     Indication: PRODUCT USED FOR UNKNOWN INDICATION
     Route: 048
     Dates: end: 20110712

REACTIONS (2)
  - HAEMORRHAGE INTRACRANIAL [None]
  - SYNCOPE [None]
